FAERS Safety Report 18618210 (Version 16)
Quarter: 2022Q1

REPORT INFORMATION
  Report Type: Report from Study
  Country: PA (occurrence: PA)
  Receive Date: 20201215
  Receipt Date: 20220222
  Transmission Date: 20220423
  Serious: Yes (Life-Threatening, Other)
  Sender: FDA-Public Use
  Company Number: NVSC2020PA322756

PATIENT
  Age: 36 Year
  Sex: Female
  Weight: 67.12 kg

DRUGS (14)
  1. ELTROMBOPAG OLAMINE [Suspect]
     Active Substance: ELTROMBOPAG OLAMINE
     Indication: Immune thrombocytopenia
     Dosage: 25 MG
     Route: 065
     Dates: start: 20200624
  2. ELTROMBOPAG OLAMINE [Suspect]
     Active Substance: ELTROMBOPAG OLAMINE
     Dosage: 25 MG, QD
     Route: 065
     Dates: start: 202006
  3. ELTROMBOPAG OLAMINE [Suspect]
     Active Substance: ELTROMBOPAG OLAMINE
     Dosage: 25 MG (2 OF 25 MG)
     Route: 065
  4. ELTROMBOPAG OLAMINE [Suspect]
     Active Substance: ELTROMBOPAG OLAMINE
     Dosage: 50 MG, QD
     Route: 048
     Dates: start: 202007
  5. ELTROMBOPAG OLAMINE [Suspect]
     Active Substance: ELTROMBOPAG OLAMINE
     Dosage: 75 MG, QD
     Route: 048
     Dates: start: 202007
  6. ELTROMBOPAG OLAMINE [Suspect]
     Active Substance: ELTROMBOPAG OLAMINE
     Dosage: 75 MG, QD (3 TABLETS DAILY)
     Route: 048
     Dates: start: 202007
  7. ELTROMBOPAG OLAMINE [Suspect]
     Active Substance: ELTROMBOPAG OLAMINE
     Dosage: 50 MG, QD
     Route: 048
     Dates: start: 202107
  8. RITUXIMAB [Suspect]
     Active Substance: RITUXIMAB
     Indication: Product used for unknown indication
     Dosage: UNK
     Route: 042
     Dates: start: 20190201
  9. PREDNISONE [Suspect]
     Active Substance: PREDNISONE
     Indication: Platelet count decreased
     Dosage: 10 MG
     Route: 065
  10. PREDNISONE [Suspect]
     Active Substance: PREDNISONE
     Dosage: 5 MG
     Route: 065
  11. PREDNISONE [Suspect]
     Active Substance: PREDNISONE
     Dosage: 2.5 MG
     Route: 065
  12. VITAMIN B12 [Concomitant]
     Active Substance: CYANOCOBALAMIN
     Indication: Hypercoagulation
     Dosage: UNK (DAILY USE)
     Route: 065
  13. FOLIC ACID [Concomitant]
     Active Substance: FOLIC ACID
     Indication: Hypercoagulation
     Dosage: UNK (USE DAILY)
     Route: 065
  14. CLONAZEPAM [Concomitant]
     Active Substance: CLONAZEPAM
     Indication: Product used for unknown indication
     Dosage: 3 DRP
     Route: 065

REACTIONS (70)
  - Near death experience [Unknown]
  - Systemic lupus erythematosus [Unknown]
  - Cellulitis [Recovering/Resolving]
  - Platelet count decreased [Unknown]
  - Headache [Unknown]
  - Menstruation irregular [Unknown]
  - Liver disorder [Unknown]
  - Diarrhoea [Not Recovered/Not Resolved]
  - Alopecia [Recovered/Resolved]
  - Back pain [Recovered/Resolved]
  - Condition aggravated [Unknown]
  - Feeling abnormal [Unknown]
  - Contusion [Unknown]
  - Haemorrhoids [Unknown]
  - Inflammation [Unknown]
  - Chromaturia [Unknown]
  - Skin fissures [Unknown]
  - Dyspepsia [Recovered/Resolved]
  - Dry skin [Unknown]
  - Tremor [Recovered/Resolved]
  - Tachycardia [Unknown]
  - Asthenia [Unknown]
  - Abdominal pain upper [Recovered/Resolved]
  - Depression [Unknown]
  - Stress [Unknown]
  - Anxiety [Unknown]
  - Dyspnoea [Unknown]
  - Heavy menstrual bleeding [Unknown]
  - Dysmenorrhoea [Unknown]
  - Fear [Unknown]
  - Dyschezia [Recovering/Resolving]
  - Palpitations [Recovering/Resolving]
  - Undifferentiated connective tissue disease [Unknown]
  - Gastrooesophageal reflux disease [Unknown]
  - Gingival bleeding [Unknown]
  - Skin wrinkling [Unknown]
  - Iron deficiency [Unknown]
  - Malaise [Unknown]
  - Milk allergy [Unknown]
  - Depressed mood [Unknown]
  - Abdominal distension [Unknown]
  - Fibromyalgia [Unknown]
  - Swelling [Unknown]
  - Drug resistance [Unknown]
  - Pain [Recovered/Resolved]
  - Eye pain [Unknown]
  - Thirst [Unknown]
  - Hunger [Unknown]
  - Ill-defined disorder [Unknown]
  - Fatigue [Unknown]
  - Restlessness [Unknown]
  - Somnolence [Unknown]
  - Arthropod sting [Recovered/Resolved]
  - Dyspepsia [Unknown]
  - Product dose omission issue [Unknown]
  - Osteoporosis [Unknown]
  - Insomnia [Unknown]
  - Chest pain [Unknown]
  - Back pain [Unknown]
  - Platelet count increased [Unknown]
  - Arthralgia [Recovering/Resolving]
  - Rash [Unknown]
  - Nasopharyngitis [Recovering/Resolving]
  - Spinal pain [Unknown]
  - Pain in extremity [Unknown]
  - Dizziness [Recovering/Resolving]
  - Platelet disorder [Unknown]
  - Vomiting [Recovered/Resolved]
  - Drug ineffective [Unknown]
  - Therapy non-responder [Unknown]

NARRATIVE: CASE EVENT DATE: 20200806
